FAERS Safety Report 24279382 (Version 1)
Quarter: 2024Q3

REPORT INFORMATION
  Report Type: Spontaneous
  Country: FR (occurrence: FR)
  Receive Date: 20240903
  Receipt Date: 20240903
  Transmission Date: 20241017
  Serious: Yes (Hospitalization)
  Sender: NOVARTIS
  Company Number: None

PATIENT
  Age: 72 Year
  Sex: Female
  Weight: 63 kg

DRUGS (3)
  1. KISQALI [Suspect]
     Active Substance: RIBOCICLIB
     Indication: Breast cancer
     Dosage: UNK (CF. COMMENTAIRE)
     Route: 048
     Dates: start: 20240601
  2. ERYTHROPOIETIN [Suspect]
     Active Substance: ERYTHROPOIETIN
     Indication: Anaemia
     Dosage: 30000 IU, QW
     Route: 058
     Dates: start: 20240602, end: 20240816
  3. FASLODEX [Suspect]
     Active Substance: FULVESTRANT
     Indication: Breast cancer
     Dosage: 1 DOSAGE FORM, QMO (250 MG/5 ML, SOLUTION INJECTABLE)
     Route: 030
     Dates: start: 2019

REACTIONS (1)
  - Cerebrovascular accident [Recovered/Resolved]

NARRATIVE: CASE EVENT DATE: 20240813
